FAERS Safety Report 4519313-8 (Version None)
Quarter: 2004Q4

REPORT INFORMATION
  Report Type: 
  Country: None (occurrence: None)
  Receive Date: 20041206
  Receipt Date: 20041125
  Transmission Date: 20050328
  Serious: Yes (Hospitalization)
  Sender: FDA-Public Use
  Company Number: FR-GLAXOSMITHKLINE-B0358360A

PATIENT
  Age: 83 Year
  Sex: Male

DRUGS (6)
  1. DEROXAT [Suspect]
     Indication: DYSTHYMIC DISORDER
     Dosage: 10MG PER DAY
     Route: 048
  2. PREVISCAN [Suspect]
     Dosage: 20MG PER DAY
     Route: 048
  3. CORDARONE [Suspect]
     Indication: ARRHYTHMIA
     Route: 048
  4. DIGOXINE NATIVELLE [Suspect]
     Indication: ARRHYTHMIA
     Dosage: 1UNIT PER DAY
     Route: 048
  5. LASILIX [Suspect]
     Indication: ESSENTIAL HYPERTENSION
     Dosage: 20MG PER DAY
     Route: 048
  6. APROVEL [Suspect]
     Indication: ESSENTIAL HYPERTENSION
     Dosage: 150MG PER DAY
     Route: 048

REACTIONS (2)
  - DRUG INTERACTION [None]
  - PROTHROMBIN LEVEL INCREASED [None]
